FAERS Safety Report 5564987-6 (Version None)
Quarter: 2007Q4

REPORT INFORMATION
  Report Type: 
  Country: None (occurrence: None)
  Receive Date: 20071218
  Receipt Date: 20071211
  Transmission Date: 20080405
  Serious: Yes (Hospitalization)
  Sender: FDA-Public Use
  Company Number: D0054911A

PATIENT
  Age: 40 Year
  Sex: Female
  Weight: 69 kg

DRUGS (2)
  1. TYKERB [Suspect]
     Dosage: 1250MG PER DAY
     Route: 048
     Dates: start: 20070901
  2. XELODA [Suspect]
     Route: 048
     Dates: start: 20070901, end: 20071024

REACTIONS (3)
  - BLISTER [None]
  - NAIL BED BLEEDING [None]
  - PARONYCHIA [None]
